FAERS Safety Report 9764757 (Version 1)
Quarter: 2013Q4

REPORT INFORMATION
  Report Type: Spontaneous
  Country: US (occurrence: None)
  Receive Date: 20131216
  Receipt Date: 20131216
  Transmission Date: 20140711
  Serious: No
  Sender: FDA-Public Use
  Company Number: None

PATIENT
  Age: 53 Year
  Sex: Female
  Weight: 68.04 kg

DRUGS (1)
  1. FLUOCINOLONE ACETONIDE 0.01% [Suspect]
     Indication: PSORIASIS
     Dosage: NET CONTENT (118.28 (ML); APPLY TO SCALP AT BEDSIDE; IN THE SCALP WHENEVER YOU WASH YOUR HAIR
     Dates: start: 20131114, end: 20131125

REACTIONS (1)
  - Palpitations [None]
